FAERS Safety Report 16629679 (Version 1)
Quarter: 2019Q3

REPORT INFORMATION
  Report Type: Spontaneous
  Country: US (occurrence: US)
  Receive Date: 20190725
  Receipt Date: 20190725
  Transmission Date: 20191004
  Serious: Yes (Other)
  Sender: FDA-Public Use
  Company Number: US-SIMILASAN CORPORATION-US-2019SIM000073

PATIENT
  Sex: Male

DRUGS (1)
  1. PINK EYE RELIEF (HOMEOPATHICS) [Suspect]
     Active Substance: ATROPA BELLADONNA\HOMEOPATHICS
     Indication: PRODUCT USED FOR UNKNOWN INDICATION
     Dosage: NI/NI/
     Route: 047
     Dates: start: 20190705, end: 20190706

REACTIONS (4)
  - Abnormal behaviour [Unknown]
  - Hallucination, visual [Unknown]
  - Adverse event [Unknown]
  - Delusion [Unknown]

NARRATIVE: CASE EVENT DATE: 20190705
